FAERS Safety Report 5670272-4 (Version None)
Quarter: 2008Q1

REPORT INFORMATION
  Report Type: 
  Country: None (occurrence: None)
  Receive Date: 20080318
  Receipt Date: 20080314
  Transmission Date: 20080703
  Serious: Yes (Hospitalization)
  Sender: FDA-Public Use
  Company Number: HU-BRISTOL-MYERS SQUIBB COMPANY-13805387

PATIENT
  Age: 65 Year
  Sex: Female

DRUGS (7)
  1. CISPLATIN [Suspect]
     Indication: METASTATIC GASTRIC CANCER
     Route: 041
     Dates: start: 20070111, end: 20070111
  2. FLUOROURACIL [Suspect]
     Indication: METASTATIC GASTRIC CANCER
     Dosage: DAY 1-5 EVERY 28 DAY
     Route: 041
     Dates: start: 20070111, end: 20070115
  3. TRAMADOL HCL [Concomitant]
     Indication: ABDOMINAL PAIN
     Route: 048
     Dates: start: 20070121
  4. REASEC [Concomitant]
     Indication: DIARRHOEA
     Route: 048
     Dates: start: 20070121
  5. NORMODIPINE [Concomitant]
     Indication: HYPERTENSION
     Route: 048
     Dates: start: 20020101
  6. BISOPROLOL FUMARATE [Concomitant]
     Indication: HYPERTENSION
     Route: 048
     Dates: start: 20020101
  7. CONTROLOC [Concomitant]
     Indication: GASTRIC CANCER
     Route: 048
     Dates: start: 20061120

REACTIONS (3)
  - ASTHENIA [None]
  - BLOOD CREATININE INCREASED [None]
  - HYPERURICAEMIA [None]
